FAERS Safety Report 5468747-6 (Version None)
Quarter: 2007Q3

REPORT INFORMATION
  Report Type: 
  Country: None (occurrence: None)
  Receive Date: 20070926
  Receipt Date: 20070919
  Transmission Date: 20080115
  Serious: Yes (Hospitalization, Disabling, Other)
  Sender: FDA-Public Use
  Company Number: US-PFIZER INC-2006122886

PATIENT
  Sex: Male
  Weight: 73 kg

DRUGS (14)
  1. CELEBREX [Suspect]
     Indication: BACK PAIN
     Route: 048
  2. VIOXX [Suspect]
     Indication: BACK PAIN
     Route: 048
  3. VASOTEC [Concomitant]
  4. LOTREL [Concomitant]
  5. ACCUPRIL [Concomitant]
  6. VALSARTAN [Concomitant]
  7. CARDURA [Concomitant]
     Dates: start: 19940101
  8. HYTRIN [Concomitant]
     Dates: start: 19940101
  9. ASPIRIN [Concomitant]
     Dates: start: 20010101
  10. PLAVIX [Concomitant]
  11. ZOCOR [Concomitant]
  12. PRAVACHOL [Concomitant]
  13. NAPROXEN [Concomitant]
  14. FOLIC ACID [Concomitant]
     Dates: start: 19990101

REACTIONS (2)
  - CEREBROVASCULAR ACCIDENT [None]
  - HEMIPARESIS [None]
